FAERS Safety Report 9257673 (Version 1)
Quarter: 2013Q2

REPORT INFORMATION
  Report Type: Spontaneous
  Country: US (occurrence: None)
  Receive Date: 20130424
  Receipt Date: 20130424
  Transmission Date: 20140414
  Serious: No
  Sender: FDA-Public Use
  Company Number: None

PATIENT
  Sex: 0

DRUGS (9)
  1. AMLODIPINE [Concomitant]
  2. FEXOFENADINE [Concomitant]
  3. HYDROXYUREA [Concomitant]
  4. FERROUS SULFATE [Concomitant]
  5. FOLIC ACID [Concomitant]
  6. REVLIMID [Suspect]
     Indication: MYELOFIBROSIS
     Route: 048
     Dates: start: 201212, end: 201302
  7. PREDNISONE [Concomitant]
  8. GLIPIZIDE [Concomitant]
  9. PRAVASTATIN [Concomitant]

REACTIONS (4)
  - Pancytopenia [None]
  - Haemorrhage [None]
  - Contusion [None]
  - Petechiae [None]
